FAERS Safety Report 5874080-0 (Version None)
Quarter: 2008Q3

REPORT INFORMATION
  Report Type: 
  Country: None (occurrence: None)
  Receive Date: 20080829
  Receipt Date: 20080820
  Transmission Date: 20090109
  Serious: Yes (Hospitalization)
  Sender: FDA-Public Use
  Company Number: 2008SP017203

PATIENT
  Age: 65 Year
  Sex: Male
  Weight: 81 kg

DRUGS (6)
  1. PEG-INTRON [Suspect]
     Indication: HEPATITIS C VIRUS TEST
  2. REBETOL [Suspect]
     Indication: HEPATITIS C VIRUS TEST
  3. NEORAL [Suspect]
     Indication: LIVER TRANSPLANT
     Dates: end: 20041218
  4. PROGRAF [Suspect]
     Indication: LIVER TRANSPLANT
     Dosage: 10 MG; QD; PO; 4 MG; QD; PO
     Route: 048
     Dates: end: 20041218
  5. PROGRAF [Suspect]
     Indication: LIVER TRANSPLANT
     Dosage: 10 MG; QD; PO; 4 MG; QD; PO
     Route: 048
     Dates: start: 20040514
  6. DIURETICS (CON.) [Concomitant]

REACTIONS (7)
  - ASCITES [None]
  - CONDITION AGGRAVATED [None]
  - DISEASE RECURRENCE [None]
  - HEPATITIS C VIRUS TEST [None]
  - PANCYTOPENIA [None]
  - PORTAL HYPERTENSION [None]
  - SPLEEN DISORDER [None]
